FAERS Safety Report 15566180 (Version 1)
Quarter: 2018Q4

REPORT INFORMATION
  Report Type: Spontaneous
  Country: US (occurrence: US)
  Receive Date: 20181030
  Receipt Date: 20181030
  Transmission Date: 20190205
  Serious: No
  Sender: FDA-Public Use
  Company Number: US-NOVOPROD-613933

PATIENT
  Age: 98 Year
  Sex: Female

DRUGS (2)
  1. VAGIFEM LD [Suspect]
     Active Substance: ESTRADIOL
     Indication: PRODUCT USED FOR UNKNOWN INDICATION
     Dosage: 1 TAB, BIW
     Route: 067
     Dates: start: 1988, end: 2016
  2. VAGIFEM LD [Suspect]
     Active Substance: ESTRADIOL
     Dosage: 1 TAB, QW
     Route: 067
     Dates: start: 2016

REACTIONS (2)
  - Breast pain [Unknown]
  - Pollakiuria [Not Recovered/Not Resolved]

NARRATIVE: CASE EVENT DATE: 2016
